FAERS Safety Report 6728201-8 (Version None)
Quarter: 2010Q2

REPORT INFORMATION
  Report Type: 
  Country: None (occurrence: None)
  Receive Date: 20100517
  Receipt Date: 20100512
  Transmission Date: 20101027
  Serious: Yes (Hospitalization)
  Sender: FDA-Public Use
  Company Number: B0652901A

PATIENT
  Sex: Female

DRUGS (1)
  1. AUGMENTIN '125' [Suspect]
     Route: 065
     Dates: start: 20100421, end: 20100422

REACTIONS (8)
  - HAEMATURIA [None]
  - HYPERTENSION [None]
  - HYPERTHERMIA [None]
  - LEUKOCYTURIA [None]
  - PRODUCT QUALITY ISSUE [None]
  - PROTEINURIA [None]
  - TUBULOINTERSTITIAL NEPHRITIS [None]
  - VOMITING [None]
